FAERS Safety Report 8456572-3 (Version None)
Quarter: 2012Q2

REPORT INFORMATION
  Report Type: 
  Country: None (occurrence: None)
  Receive Date: 20120621
  Receipt Date: 20120612
  Transmission Date: 20120825
  Serious: Yes (Other)
  Sender: FDA-Public Use
  Company Number: US-ASTRAZENECA-2012SE39559

PATIENT
  Age: 74 Year
  Sex: Male
  Weight: 82.1 kg

DRUGS (5)
  1. ALLAGRA [Concomitant]
     Dosage: 180 1 ONCE A DAY
     Route: 048
  2. AVODART [Concomitant]
  3. PRILOSEC OTC [Suspect]
     Route: 048
  4. FLOMAX [Concomitant]
  5. LISINOPRIL [Suspect]
     Route: 048

REACTIONS (27)
  - DYSPEPSIA [None]
  - DYSPHAGIA [None]
  - ABDOMINAL PAIN UPPER [None]
  - NOCTURIA [None]
  - ERUCTATION [None]
  - ARTHRALGIA [None]
  - PROSTATIC DISORDER [None]
  - INCREASED TENDENCY TO BRUISE [None]
  - CHOKING [None]
  - HIATUS HERNIA [None]
  - GALLBLADDER DISORDER [None]
  - MAJOR DEPRESSION [None]
  - DYSPNOEA [None]
  - GASTROOESOPHAGEAL REFLUX DISEASE [None]
  - JOINT SWELLING [None]
  - DRUG INEFFECTIVE [None]
  - DIZZINESS [None]
  - HYPERTENSION [None]
  - MUSCULAR WEAKNESS [None]
  - ANXIETY [None]
  - RETCHING [None]
  - NAUSEA [None]
  - GASTRITIS [None]
  - JOINT STIFFNESS [None]
  - PARALYSIS [None]
  - POLLAKIURIA [None]
  - MUSCLE SPASMS [None]
